FAERS Safety Report 8891664 (Version 1)
Quarter: 2012Q4

REPORT INFORMATION
  Report Type: 
  Country: GB (occurrence: GB)
  Receive Date: 20121107
  Receipt Date: 20121107
  Transmission Date: 20130627
  Serious: Yes (Hospitalization)
  Sender: FDA-Public Use
  Company Number: GB-BAUSCH-BL-2012-001527

PATIENT
  Age: 79 Year
  Sex: Male
  Weight: 59.6 kg

DRUGS (12)
  1. DEXAMETHASONE [Suspect]
     Indication: MULTIPLE MYELOMA
     Route: 048
     Dates: start: 20120717, end: 20120821
  2. CYCLOPHOSPHAMIDE [Suspect]
     Indication: MULTIPLE MYELOMA
     Route: 048
     Dates: start: 20120717, end: 20120821
  3. BORTEZOMIB [Suspect]
     Indication: MULTIPLE MYELOMA
     Route: 058
     Dates: start: 20120717, end: 20120728
  4. BORTEZOMIB [Suspect]
     Dates: start: 20120821
  5. NO DRUG NAME [Concomitant]
     Indication: HYPERTENSION
     Route: 048
  6. NO DRUG NAME [Concomitant]
     Indication: HYPERTENSION
     Route: 048
  7. NO DRUG NAME [Concomitant]
     Indication: PRODUCT USED FOR UNKNOWN INDICATION
     Route: 048
  8. NO DRUG NAME [Concomitant]
     Indication: MULTIPLE MYELOMA
  9. NO DRUG NAME [Concomitant]
     Indication: PRODUCT USED FOR UNKNOWN INDICATION
     Route: 048
  10. NO DRUG NAME [Concomitant]
     Indication: MULTIPLE MYELOMA
     Dates: start: 200912, end: 201005
  11. NO DRUG NAME [Concomitant]
     Indication: MULTIPLE MYELOMA
     Dates: start: 200912, end: 201005
  12. NO DRUG NAME [Concomitant]
     Indication: MULTIPLE MYELOMA
     Dates: start: 200912, end: 201005

REACTIONS (2)
  - Orthostatic hypotension [Recovered/Resolved]
  - Peripheral sensory neuropathy [Not Recovered/Not Resolved]
